FAERS Safety Report 12086210 (Version 1)
Quarter: 2016Q1

REPORT INFORMATION
  Report Type: Spontaneous
  Country: US (occurrence: US)
  Receive Date: 20160217
  Receipt Date: 20160217
  Transmission Date: 20160526
  Serious: No
  Sender: FDA-Public Use
  Company Number: US-TAKEDA-2015TUS006430

PATIENT
  Age: 38 Year
  Sex: Female
  Weight: 49.89 kg

DRUGS (1)
  1. PREVACID [Suspect]
     Active Substance: LANSOPRAZOLE
     Indication: REFLUX LARYNGITIS
     Dosage: 30 MG, ONCE DAILY AT BEDTIME
     Route: 048
     Dates: start: 20150506, end: 20150507

REACTIONS (2)
  - Inappropriate schedule of drug administration [Recovered/Resolved]
  - Abdominal discomfort [Recovered/Resolved]

NARRATIVE: CASE EVENT DATE: 20150507
